FAERS Safety Report 8189929-9 (Version None)
Quarter: 2012Q1

REPORT INFORMATION
  Report Type: 
  Country: None (occurrence: None)
  Receive Date: 20120307
  Receipt Date: 20120228
  Transmission Date: 20120608
  Serious: Yes (Other)
  Sender: FDA-Public Use
  Company Number: JP-ASTELLAS-2012JP001727

PATIENT
  Age: 45 Year
  Sex: Female

DRUGS (5)
  1. MEDROL [Concomitant]
     Indication: IMMUNOSUPPRESSANT DRUG THERAPY
     Dosage: 4 MG, UNKNOWN/D
     Route: 048
  2. MYCOPHENOLATE MOFETIL (CELLCEPT) [Concomitant]
     Indication: IMMUNOSUPPRESSANT DRUG THERAPY
     Dosage: 500 MG, UNKNOWN/D
     Route: 048
  3. LANSOPRAZOLE [Concomitant]
     Dosage: 15 MG, UNKNOWN/D
     Route: 048
  4. PROGRAF [Suspect]
     Indication: IMMUNOSUPPRESSANT DRUG THERAPY
     Dosage: 4.5 MG, UNKNOWN/D
     Route: 048
  5. COTRIM [Concomitant]
     Dosage: UNK
     Route: 048

REACTIONS (2)
  - TONSILLITIS [None]
  - IGA NEPHROPATHY [None]
